FAERS Safety Report 4438222-6 (Version None)
Quarter: 2004Q3

REPORT INFORMATION
  Report Type: 
  Country: None (occurrence: None)
  Receive Date: 20040831
  Receipt Date: 20040621
  Transmission Date: 20050211
  Serious: No
  Sender: FDA-Public Use
  Company Number: US-GLAXOSMITHKLINE-A0515383A

PATIENT
  Age: 44 Year
  Sex: Male

DRUGS (2)
  1. WELLBUTRIN XL [Suspect]
     Indication: DEPRESSION
     Dosage: 150TAB PER DAY
     Route: 048
     Dates: start: 20040301, end: 20040414
  2. PRAVACHOL [Concomitant]

REACTIONS (4)
  - AGEUSIA [None]
  - DYSPHAGIA [None]
  - NAUSEA [None]
  - VOMITING [None]
